FAERS Safety Report 4378264-2 (Version None)
Quarter: 2004Q2

REPORT INFORMATION
  Report Type: 
  Country: None (occurrence: None)
  Receive Date: 20040609
  Receipt Date: 20040518
  Transmission Date: 20050107
  Serious: Yes (Other)
  Sender: FDA-Public Use
  Company Number: USA040360648

PATIENT
  Age: 50 Year
  Sex: Female

DRUGS (12)
  1. FORTEO [Suspect]
     Indication: OSTEOPOROSIS
     Dates: start: 20040223
  2. FOLIC ACID [Concomitant]
  3. CELEBREX [Concomitant]
  4. METHOTREXATE [Concomitant]
  5. RANITIDINE [Concomitant]
  6. LOTREL [Concomitant]
  7. SYNTHROID [Concomitant]
  8. PREMARIN [Concomitant]
  9. VICODIN [Concomitant]
  10. SOMA [Concomitant]
  11. AMBIEN [Concomitant]
  12. VITAMIN CAP [Concomitant]

REACTIONS (24)
  - ARTHROPATHY [None]
  - BACK PAIN [None]
  - BODY TEMPERATURE INCREASED [None]
  - CEREBRAL ARTERY EMBOLISM [None]
  - CONTUSION [None]
  - DYSARTHRIA [None]
  - DYSGRAPHIA [None]
  - DYSMENORRHOEA [None]
  - ELECTROLYTE IMBALANCE [None]
  - EMBOLISM [None]
  - IATROGENIC INJURY [None]
  - INFLUENZA [None]
  - INJECTION SITE HAEMORRHAGE [None]
  - INJECTION SITE PAIN [None]
  - INJECTION SITE STINGING [None]
  - INJECTION SITE THROMBOSIS [None]
  - MUSCLE CRAMP [None]
  - NERVOUS SYSTEM DISORDER [None]
  - PAIN [None]
  - PHARMACEUTICAL PRODUCT COMPLAINT [None]
  - PHARYNGEAL ERYTHEMA [None]
  - REPETITIVE SPEECH [None]
  - STOMACH DISCOMFORT [None]
  - STRESS SYMPTOMS [None]
